FAERS Safety Report 6433695-1 (Version None)
Quarter: 2009Q4

REPORT INFORMATION
  Report Type: 
  Country: None (occurrence: None)
  Receive Date: 20091110
  Receipt Date: 20091027
  Transmission Date: 20100525
  Serious: Yes (Life-Threatening, Hospitalization)
  Sender: FDA-Public Use
  Company Number: FR-ROCHE-665338

PATIENT
  Sex: Male

DRUGS (5)
  1. PEGASYS [Suspect]
     Indication: HEPATITIS C
     Route: 058
     Dates: start: 20090113, end: 20090729
  2. COPEGUS [Suspect]
     Indication: HEPATITIS C
     Route: 048
     Dates: start: 20090113, end: 20090729
  3. DAFALGAN [Concomitant]
     Indication: PAIN
     Route: 048
     Dates: start: 20090520, end: 20090729
  4. APROVEL [Concomitant]
     Route: 048
     Dates: start: 20090520, end: 20090729
  5. MOPRAL [Concomitant]
     Route: 048
     Dates: start: 20090520, end: 20090729

REACTIONS (4)
  - ACUTE PULMONARY OEDEMA [None]
  - ACUTE RESPIRATORY DISTRESS SYNDROME [None]
  - CARDIAC FAILURE [None]
  - INFECTION [None]
